FAERS Safety Report 4938442-8 (Version None)
Quarter: 2006Q1

REPORT INFORMATION
  Report Type: 
  Country: None (occurrence: None)
  Receive Date: 20060309
  Receipt Date: 20060308
  Transmission Date: 20060701
  Serious: Yes (Hospitalization)
  Sender: FDA-Public Use
  Company Number: 200611303EU

PATIENT
  Age: 69 Year
  Sex: Female

DRUGS (9)
  1. NICODERM [Suspect]
     Route: 062
     Dates: start: 20020101, end: 20020101
  2. METOPROLOL [Concomitant]
  3. LEVOTHYROXIN SODIUM [Concomitant]
     Indication: HYPOTHYROIDISM
     Dates: start: 19910101
  4. ASCORBIC ACID [Concomitant]
     Indication: VITAMIN SUPPLEMENTATION
     Route: 048
  5. FLUOXETINE HYDROCHLORIDE [Concomitant]
     Indication: ANXIETY
  6. ACETYLSALICYLIC ACID SRT [Concomitant]
     Indication: THROMBOSIS PROPHYLAXIS
  7. CALCIUM WITH VITAMIN D [Concomitant]
     Route: 048
  8. COMPLEXO B [Concomitant]
     Indication: VITAMIN SUPPLEMENTATION
  9. LORAZEPAM [Concomitant]
     Indication: PANIC ATTACK

REACTIONS (7)
  - DIZZINESS [None]
  - FEELING ABNORMAL [None]
  - LOSS OF CONSCIOUSNESS [None]
  - MALAISE [None]
  - NAUSEA [None]
  - OVERDOSE [None]
  - PANIC ATTACK [None]
